FAERS Safety Report 12377723 (Version 7)
Quarter: 2021Q2

REPORT INFORMATION
  Report Type: Spontaneous
  Country: US (occurrence: US)
  Receive Date: 20160517
  Receipt Date: 20210526
  Transmission Date: 20210716
  Serious: Yes (Other)
  Sender: FDA-Public Use
  Company Number: US-PFIZER INC-2016260571

PATIENT
  Age: 58 Year
  Sex: Female
  Weight: 64 kg

DRUGS (4)
  1. PRISTIQ EXTENDED?RELEASE [Suspect]
     Active Substance: DESVENLAFAXINE SUCCINATE
     Indication: DEPRESSION
     Dosage: UNK, 1X/DAY
     Route: 048
  2. LYRICA [Suspect]
     Active Substance: PREGABALIN
     Indication: NEURALGIA
     Dosage: 100 MG, 2X/DAY
     Route: 048
  3. PRISTIQ EXTENDED?RELEASE [Suspect]
     Active Substance: DESVENLAFAXINE SUCCINATE
     Dosage: 50 MG, 2X/DAY
     Route: 048
  4. LYRICA [Suspect]
     Active Substance: PREGABALIN
     Indication: CERVIX DISORDER

REACTIONS (8)
  - Road traffic accident [Unknown]
  - Head discomfort [Not Recovered/Not Resolved]
  - Depressed mood [Unknown]
  - Infection [Not Recovered/Not Resolved]
  - Dizziness [Not Recovered/Not Resolved]
  - Speech disorder [Not Recovered/Not Resolved]
  - Central nervous system vasculitis [Unknown]
  - Amnesia [Unknown]
